FAERS Safety Report 9543286 (Version 1)
Quarter: 2013Q3

REPORT INFORMATION
  Report Type: Spontaneous
  Country: US (occurrence: US)
  Receive Date: 20130923
  Receipt Date: 20130923
  Transmission Date: 20140515
  Serious: Yes (Other)
  Sender: FDA-Public Use
  Company Number: US-PFIZER INC-2013270644

PATIENT
  Sex: Male

DRUGS (2)
  1. DILANTIN [Suspect]
     Indication: CONVULSION
     Dosage: UNK
  2. KEPPRA [Concomitant]
     Dosage: UNK

REACTIONS (5)
  - Epilepsy [Unknown]
  - Coma [Unknown]
  - Nervous system disorder [Unknown]
  - Drug ineffective [Unknown]
  - Gingival disorder [Unknown]
